FAERS Safety Report 9628630 (Version 1)
Quarter: 2013Q4

REPORT INFORMATION
  Report Type: Spontaneous
  Country: US (occurrence: US)
  Receive Date: 20131017
  Receipt Date: 20131017
  Transmission Date: 20140711
  Serious: Yes (Hospitalization)
  Sender: FDA-Public Use
  Company Number: US-SA-2013SA102419

PATIENT
  Age: 56 Year
  Sex: Female

DRUGS (3)
  1. AMBIEN [Suspect]
     Route: 065
  2. COPAXONE [Suspect]
     Indication: MULTIPLE SCLEROSIS
     Route: 065
     Dates: start: 20060817
  3. ALCOHOL [Suspect]
     Route: 065

REACTIONS (8)
  - Fall [Recovered/Resolved]
  - Multiple sclerosis relapse [Recovered/Resolved]
  - Muscular weakness [Recovered/Resolved]
  - Leukaemia [Unknown]
  - Suicide attempt [Recovering/Resolving]
  - Loss of consciousness [Recovering/Resolving]
  - Amnesia [Unknown]
  - Accidental overdose [Unknown]
